FAERS Safety Report 10256808 (Version 6)
Quarter: 2015Q4

REPORT INFORMATION
  Report Type: Report from Study
  Country: US (occurrence: US)
  Receive Date: 20140625
  Receipt Date: 20151208
  Transmission Date: 20160304
  Serious: Yes (Hospitalization, Disabling, Other)
  Sender: FDA-Public Use
  Company Number: US-AMGEN-USASP2014046947

PATIENT
  Age: 49 Year
  Sex: Male

DRUGS (3)
  1. MINOCYCLINE [Concomitant]
     Active Substance: MINOCYCLINE\MINOCYCLINE HYDROCHLORIDE
     Indication: RHEUMATOID ARTHRITIS
     Dosage: 200 MG, BID
  2. ARAVA [Concomitant]
     Active Substance: LEFLUNOMIDE
     Indication: RHEUMATOID ARTHRITIS
     Dosage: 10 MG, QD
     Dates: start: 201511
  3. ENBREL [Suspect]
     Active Substance: ETANERCEPT
     Indication: RHEUMATOID ARTHRITIS
     Dosage: 50 MG, QWK
     Route: 065
     Dates: start: 20120915, end: 201406

REACTIONS (14)
  - Thrombosis [Unknown]
  - Obesity [Unknown]
  - Pain in extremity [Unknown]
  - Hypoaesthesia [Unknown]
  - Staphylococcal infection [Unknown]
  - Pulse absent [Not Recovered/Not Resolved]
  - Catheterisation cardiac [Unknown]
  - Asthenia [Unknown]
  - Arthritis [Unknown]
  - Skin discolouration [Unknown]
  - Wound dehiscence [Unknown]
  - Arthralgia [Unknown]
  - Diabetes mellitus [Unknown]
  - Gait disturbance [Unknown]

NARRATIVE: CASE EVENT DATE: 2014
